FAERS Safety Report 22933125 (Version 3)
Quarter: 2024Q1

REPORT INFORMATION
  Report Type: Spontaneous
  Country: JP (occurrence: JP)
  Receive Date: 20230912
  Receipt Date: 20240223
  Transmission Date: 20240409
  Serious: Yes (Other)
  Sender: FDA-Public Use
  Company Number: JP-MSD-M2023-37420

PATIENT
  Age: 62 Year
  Sex: Female

DRUGS (7)
  1. LAGEVRIO [Suspect]
     Active Substance: MOLNUPIRAVIR
     Indication: COVID-19 treatment
     Dosage: 800 MILLIGRAM, QD, EVENING
     Route: 048
     Dates: start: 20230903, end: 20230903
  2. LAGEVRIO [Suspect]
     Active Substance: MOLNUPIRAVIR
     Dosage: 800 MILLIGRAM, BID
     Route: 048
     Dates: start: 20230904, end: 20230907
  3. LAGEVRIO [Suspect]
     Active Substance: MOLNUPIRAVIR
     Dosage: 800 MILLIGRAM, QD, MORNING
     Route: 048
     Dates: start: 20230908, end: 20230908
  4. TRANSAMIN [Concomitant]
     Active Substance: TRANEXAMIC ACID
     Indication: COVID-19
     Dosage: UNK
     Route: 048
     Dates: start: 20230903, end: 20230908
  5. CARBOCYSTEINE [Concomitant]
     Active Substance: CARBOCYSTEINE
     Indication: COVID-19
     Dosage: UNK
     Route: 048
     Dates: start: 20230903, end: 20230908
  6. CALONAL [Concomitant]
     Active Substance: ACETAMINOPHEN
     Indication: COVID-19
     Dosage: UNK
     Route: 048
     Dates: start: 20230903, end: 20230908
  7. HUSCODE [Concomitant]
     Active Substance: CHLORPHENIRAMINE MALEATE\DIHYDROCODEINE PHOSPHATE\METHYLEPHEDRINE HYDROCHLORIDE, DL-
     Indication: Cough
     Dosage: 2 DOSAGE FORM, TID
     Route: 048
     Dates: start: 20230903, end: 20230908

REACTIONS (2)
  - Haematochezia [Recovered/Resolved]
  - Abdominal pain [Recovered/Resolved]

NARRATIVE: CASE EVENT DATE: 20230903
